FAERS Safety Report 17368391 (Version 1)
Quarter: 2020Q1

REPORT INFORMATION
  Report Type: Spontaneous
  Country: SE (occurrence: SE)
  Receive Date: 20200204
  Receipt Date: 20200204
  Transmission Date: 20200409
  Serious: Yes (Other)
  Sender: FDA-Public Use
  Company Number: SE-AMERICAN REGENT INC-2020000277

PATIENT
  Age: 72 Year
  Sex: Female
  Weight: 81 kg

DRUGS (1)
  1. FERINJECT [Suspect]
     Active Substance: FERRIC CARBOXYMALTOSE
     Indication: ANAEMIA
     Dosage: UNK
     Route: 042
     Dates: start: 20191119, end: 20191119

REACTIONS (2)
  - Depressed level of consciousness [Recovering/Resolving]
  - Abdominal pain [Recovering/Resolving]

NARRATIVE: CASE EVENT DATE: 20191119
